FAERS Safety Report 8175080-0 (Version None)
Quarter: 2012Q1

REPORT INFORMATION
  Report Type: 
  Country: None (occurrence: None)
  Receive Date: 20120229
  Receipt Date: 20120222
  Transmission Date: 20120608
  Serious: Yes (Other)
  Sender: FDA-Public Use
  Company Number: PHHY2011DE61920

PATIENT
  Sex: Female

DRUGS (5)
  1. GILENYA [Suspect]
     Dosage: 0.5 MG, QD
     Route: 048
     Dates: start: 20110624
  2. MOXONIDINE [Concomitant]
     Indication: HYPERTENSION
     Route: 048
  3. AMLODIPINE [Concomitant]
     Indication: HYPERTENSION
     Route: 048
  4. NEBIVOLOL [Concomitant]
     Indication: HYPERTENSION
     Route: 048
  5. GILENYA [Suspect]
     Indication: MULTIPLE SCLEROSIS
     Dosage: 0.5 MG, QD
     Route: 048
     Dates: start: 20101101, end: 20110523

REACTIONS (5)
  - MULTIPLE SCLEROSIS RELAPSE [None]
  - DRUG EFFECT DECREASED [None]
  - BRADYCARDIA [None]
  - DIZZINESS [None]
  - PSORIATIC ARTHROPATHY [None]
